FAERS Safety Report 5166018-9 (Version None)
Quarter: 2006Q4

REPORT INFORMATION
  Report Type: 
  Country: None (occurrence: None)
  Receive Date: 20061128
  Receipt Date: 20061116
  Transmission Date: 20070319
  Serious: Yes (Death)
  Sender: FDA-Public Use
  Company Number: 2006141837

PATIENT
  Age: 25 Year
  Sex: Male
  Weight: 72.5755 kg

DRUGS (1)
  1. NATURAL CITRUS LISTERINE [Suspect]
     Indication: ALCOHOLISM
     Dosage: UP TO 2 BOTTLES A DAY; 3 BOTTLES A WEEK, ORAL
     Route: 048
     Dates: start: 20060101

REACTIONS (1)
  - SELF INJURIOUS BEHAVIOUR [None]
